FAERS Safety Report 23148618 (Version 2)
Quarter: 2024Q3

REPORT INFORMATION
  Report Type: Report from Study
  Country: CN (occurrence: CN)
  Receive Date: 20231106
  Receipt Date: 20240710
  Transmission Date: 20241016
  Serious: No
  Sender: ROCHE
  Company Number: CN-ROCHE-3283720

PATIENT
  Age: 39 Year
  Sex: Female
  Weight: 55.0 kg

DRUGS (1)
  1. ALECENSA [Suspect]
     Active Substance: ALECTINIB HYDROCHLORIDE
     Indication: Lung neoplasm malignant
     Dosage: 224 CAPSULES
     Route: 048
     Dates: start: 20230110

REACTIONS (4)
  - Constipation [Not Recovered/Not Resolved]
  - Dyspnoea [Recovering/Resolving]
  - Asthenia [Recovering/Resolving]
  - Dysphonia [Recovered/Resolved]

NARRATIVE: CASE EVENT DATE: 20230811
